FAERS Safety Report 24452501 (Version 2)
Quarter: 2024Q4

REPORT INFORMATION
  Report Type: Report from Study
  Country: US (occurrence: US)
  Receive Date: 20241017
  Receipt Date: 20241022
  Transmission Date: 20250114
  Serious: No
  Sender: SANOFI AVENTIS
  Company Number: US-SA-2024SA294669

PATIENT
  Age: 37 Year
  Sex: Female

DRUGS (9)
  1. TZIELD [Suspect]
     Active Substance: TEPLIZUMAB-MZWV
     Indication: Diabetes prophylaxis
     Dosage: 94.25 UG, 1X
     Route: 042
     Dates: start: 20240927, end: 20240927
  2. TZIELD [Suspect]
     Active Substance: TEPLIZUMAB-MZWV
     Dosage: 181.25 UG, 1X
     Route: 042
     Dates: start: 20240928, end: 20240928
  3. TZIELD [Suspect]
     Active Substance: TEPLIZUMAB-MZWV
     Dosage: 362.5 UG, 1X
     Route: 042
     Dates: start: 20240929, end: 20240929
  4. TZIELD [Suspect]
     Active Substance: TEPLIZUMAB-MZWV
     Dosage: 725 UG, 1X
     Dates: start: 20240930, end: 20240930
  5. TZIELD [Suspect]
     Active Substance: TEPLIZUMAB-MZWV
     Dosage: 1493.5 MCG
     Dates: start: 20241001, end: 20241002
  6. TZIELD [Suspect]
     Active Substance: TEPLIZUMAB-MZWV
     Dosage: UNK
     Dates: start: 20241003, end: 20241009
  7. TZIELD [Suspect]
     Active Substance: TEPLIZUMAB-MZWV
     Dosage: UNK UNK, 1X
     Dates: start: 20241011, end: 20241011
  8. IBUPROFEN [Concomitant]
     Active Substance: IBUPROFEN
     Indication: Premedication
     Dosage: UNK
     Dates: start: 20240927
  9. LORATADINE [Concomitant]
     Active Substance: LORATADINE
     Indication: Premedication
     Dosage: UNK
     Dates: start: 20240927

REACTIONS (21)
  - Raynaud^s phenomenon [Unknown]
  - Dyspnoea [Unknown]
  - Heart rate increased [Unknown]
  - Vomiting projectile [Unknown]
  - Muscular weakness [Unknown]
  - Abdominal pain [Unknown]
  - Back pain [Unknown]
  - Cold sweat [Unknown]
  - Neck pain [Unknown]
  - Ear pain [Unknown]
  - Axillary pain [Unknown]
  - Body temperature increased [Unknown]
  - Peripheral swelling [Unknown]
  - Blood pressure systolic decreased [Recovering/Resolving]
  - Malaise [Unknown]
  - Hypotension [Unknown]
  - Diarrhoea [Recovered/Resolved]
  - Headache [Unknown]
  - Nausea [Recovered/Resolved]
  - Pyrexia [Unknown]
  - Inappropriate schedule of product administration [Unknown]

NARRATIVE: CASE EVENT DATE: 20240101
